FAERS Safety Report 6862993-2 (Version None)
Quarter: 2010Q3

REPORT INFORMATION
  Report Type: 
  Country: None (occurrence: None)
  Receive Date: 20100721
  Receipt Date: 20100713
  Transmission Date: 20110219
  Serious: Yes (Hospitalization)
  Sender: FDA-Public Use
  Company Number: ES-PFIZER INC-2010087496

PATIENT
  Age: 65 Year
  Sex: Male

DRUGS (6)
  1. ZITHROMAX [Suspect]
     Indication: RESPIRATORY TRACT INFECTION
     Dosage: 500 MG/DAY
     Route: 048
     Dates: start: 20100222, end: 20100225
  2. SEPTRIN [Concomitant]
     Indication: PROPHYLAXIS
     Dosage: 6 DF, WEEKLY
     Route: 048
     Dates: start: 20100108
  3. PREVENCOR [Concomitant]
     Indication: DYSLIPIDAEMIA
     Dosage: 80 MG, 1X/DAY
     Route: 048
     Dates: start: 20100108
  4. EMPORTAL [Concomitant]
     Indication: CONSTIPATION
     Dosage: 1 DF, AS NEEDED
     Route: 048
     Dates: start: 20100108
  5. ACICLOVIR [Concomitant]
     Indication: PROPHYLAXIS
     Dosage: 800 MG, 1X/DAY
     Route: 048
     Dates: start: 20100108
  6. PANTOPRAZOL [Concomitant]
     Indication: PROPHYLAXIS
     Dosage: 40 MG, 1X/DAY
     Route: 048
     Dates: start: 20100108

REACTIONS (2)
  - HEPATITIS [None]
  - HYPERBILIRUBINAEMIA [None]
